FAERS Safety Report 9563005 (Version 1)
Quarter: 2013Q3

REPORT INFORMATION
  Report Type: Spontaneous
  Country: OM (occurrence: OM)
  Receive Date: 20130927
  Receipt Date: 20130927
  Transmission Date: 20140515
  Serious: Yes (Other)
  Sender: FDA-Public Use
  Company Number: PHHY2013OM103880

PATIENT
  Age: 40 Year
  Sex: Female

DRUGS (1)
  1. METFORMIN [Suspect]
     Indication: GESTATIONAL DIABETES

REACTIONS (10)
  - Uterine malposition [Recovered/Resolved]
  - Hypotension [Recovered/Resolved]
  - Foetal malpresentation [Recovered/Resolved]
  - Polyhydramnios [Unknown]
  - Dyspnoea [Recovered/Resolved]
  - Dizziness [Recovered/Resolved]
  - Bradycardia [Recovered/Resolved]
  - Hypertension [Unknown]
  - Maternal exposure during pregnancy [Unknown]
  - Normal newborn [Unknown]
